FAERS Safety Report 14623782 (Version 1)
Quarter: 2018Q1

REPORT INFORMATION
  Report Type: Spontaneous
  Country: US (occurrence: US)
  Receive Date: 20180309
  Receipt Date: 20180309
  Transmission Date: 20180509
  Serious: Yes (Hospitalization)
  Sender: FDA-Public Use
  Company Number: None

PATIENT
  Age: 64 Year
  Sex: Female

DRUGS (28)
  1. MAG CITRATE SOL LEMON [Concomitant]
  2. PROCRIT [Concomitant]
     Active Substance: ERYTHROPOIETIN
  3. CARTIA XT [Concomitant]
     Active Substance: DILTIAZEM HYDROCHLORIDE
  4. ONDANSETRON [Concomitant]
     Active Substance: ONDANSETRON
  5. LYRICA [Concomitant]
     Active Substance: PREGABALIN
  6. BISOPROL [Concomitant]
     Active Substance: BISOPROLOL FUMARATE
  7. PROCHLORPER [Concomitant]
  8. POLYETH GLYC [Concomitant]
     Active Substance: POLYETHYLENE GLYCOLS
  9. SIMVASTATIN. [Concomitant]
     Active Substance: SIMVASTATIN
  10. OMEPRAZOLE. [Concomitant]
     Active Substance: OMEPRAZOLE
  11. PROGRAF [Suspect]
     Active Substance: TACROLIMUS\TACROLIMUS ANHYDROUS
     Indication: TRANSPLANT
     Dosage: FREQUENCY - QAM
     Route: 048
  12. TYLENOL [Concomitant]
     Active Substance: ACETAMINOPHEN
  13. NYSTATIN. [Concomitant]
     Active Substance: NYSTATIN
  14. OXYCODONE [Concomitant]
     Active Substance: OXYCODONE
  15. AMOXICILLIN. [Concomitant]
     Active Substance: AMOXICILLIN
  16. IBUPROFEN. [Concomitant]
     Active Substance: IBUPROFEN
  17. VALCYTE [Concomitant]
     Active Substance: VALGANCICLOVIR HYDROCHLORIDE
  18. CARVEDILOL. [Concomitant]
     Active Substance: CARVEDILOL
  19. PROGRAF [Suspect]
     Active Substance: TACROLIMUS\TACROLIMUS ANHYDROUS
     Indication: TRANSPLANT
     Route: 048
     Dates: start: 20150527
  20. MYCOPHENOLATE 360MG [Suspect]
     Active Substance: MYCOPHENOLIC ACID
     Indication: TRANSPLANT
     Dosage: FREQUENCY - 2 TABS AM, 1 TAB QPM
     Route: 048
     Dates: start: 20150512
  21. HYDROCO/APAP [Concomitant]
     Active Substance: ACETAMINOPHEN\HYDROCODONE
  22. LEVOTHYROXIN [Concomitant]
     Active Substance: LEVOTHYROXINE
  23. KIONEX [Concomitant]
     Active Substance: SODIUM POLYSTYRENE SULFONATE
  24. MYCOPHENOLAT [Concomitant]
     Active Substance: MYCOPHENOLATE MOFETIL
  25. BD SHARPS MIS [Concomitant]
  26. LOSARTAN. [Concomitant]
     Active Substance: LOSARTAN
  27. RANITIDINE. [Concomitant]
     Active Substance: RANITIDINE
  28. DILTIAZEM. [Concomitant]
     Active Substance: DILTIAZEM

REACTIONS (2)
  - Pain in extremity [None]
  - Muscle spasms [None]

NARRATIVE: CASE EVENT DATE: 20180307
